FAERS Safety Report 23387931 (Version 1)
Quarter: 2024Q1

REPORT INFORMATION
  Report Type: Spontaneous
  Country: PE (occurrence: None)
  Receive Date: 20240109
  Receipt Date: 20240109
  Transmission Date: 20240409
  Serious: Yes (Other)
  Sender: FDA-Public Use
  Company Number: None

PATIENT
  Age: 83 Year
  Sex: Female
  Weight: 67.5 kg

DRUGS (5)
  1. PACLITAXEL [Suspect]
     Active Substance: PACLITAXEL
     Indication: Neoplasm malignant
     Route: 042
     Dates: start: 20210428, end: 20210512
  2. LYRICA [Suspect]
     Active Substance: PREGABALIN
  3. LOSARTAN [Concomitant]
     Active Substance: LOSARTAN
  4. BROMPHENIRAMINE MALEATE [Concomitant]
     Active Substance: BROMPHENIRAMINE MALEATE
  5. VITAMINS [Concomitant]
     Active Substance: VITAMINS

REACTIONS (7)
  - Asthenia [None]
  - Fall [None]
  - Balance disorder [None]
  - Hypophagia [None]
  - Laboratory test abnormal [None]
  - Neuropathy peripheral [None]
  - Disease recurrence [None]

NARRATIVE: CASE EVENT DATE: 20210510
